FAERS Safety Report 6821663-7 (Version None)
Quarter: 2010Q3

REPORT INFORMATION
  Report Type: 
  Country: None (occurrence: None)
  Receive Date: 20100707
  Receipt Date: 20090330
  Transmission Date: 20110219
  Serious: No
  Sender: FDA-Public Use
  Company Number: US-PFIZER INC-2009170597

PATIENT
  Sex: Female

DRUGS (8)
  1. ZOLOFT [Suspect]
     Dosage: 100 MG, 1X/DAY
     Route: 048
  2. SERTRALINE HCL [Suspect]
     Dosage: 100 MG, 1X/DAY
     Route: 048
  3. IMIPRAMINE [Suspect]
     Dosage: 25 MG, 1X/DAY
  4. RISPERDAL [Suspect]
     Dosage: 2 MG, 1X/DAY
  5. RISPERIDONE [Suspect]
     Dosage: 2 MG, 1X/DAY
  6. ABILIFY [Concomitant]
     Dosage: UNK
  7. BENZTROPEINE [Concomitant]
     Dosage: UNK
  8. ALBUTEROL [Concomitant]
     Dosage: UNK

REACTIONS (3)
  - ABNORMAL BEHAVIOUR [None]
  - DISTURBANCE IN ATTENTION [None]
  - SOMNOLENCE [None]
